FAERS Safety Report 8207617-7 (Version None)
Quarter: 2012Q1

REPORT INFORMATION
  Report Type: 
  Country: None (occurrence: None)
  Receive Date: 20120314
  Receipt Date: 20120314
  Transmission Date: 20120608
  Serious: Yes (Other)
  Sender: FDA-Public Use
  Company Number: None

PATIENT
  Age: 71 Year
  Sex: Female
  Weight: 53.523 kg

DRUGS (1)
  1. RECLAST [Suspect]
     Indication: DRUG THERAPY
     Dates: start: 20101122, end: 20101122

REACTIONS (11)
  - PAIN [None]
  - FLUID RETENTION [None]
  - DEHYDRATION [None]
  - HEADACHE [None]
  - LIVER DISORDER [None]
  - FOOD INTOLERANCE [None]
  - EAR PAIN [None]
  - ASTHENIA [None]
  - TOOTHACHE [None]
  - JOINT SWELLING [None]
  - WEIGHT DECREASED [None]
